FAERS Safety Report 7273422-1 (Version None)
Quarter: 2011Q1

REPORT INFORMATION
  Report Type: 
  Country: None (occurrence: None)
  Receive Date: 20110203
  Receipt Date: 20100903
  Transmission Date: 20110831
  Serious: No
  Sender: FDA-Public Use
  Company Number: US-ABBOTT-10P-163-0669820-00

PATIENT
  Sex: Female
  Weight: 87.622 kg

DRUGS (26)
  1. CO Q10 [Concomitant]
     Indication: PRODUCT USED FOR UNKNOWN INDICATION
  2. CHROMIUM PICOLINATE [Concomitant]
     Indication: PRODUCT USED FOR UNKNOWN INDICATION
  3. POTASSIUM [Concomitant]
     Indication: PRODUCT USED FOR UNKNOWN INDICATION
  4. ROSEMARY [Concomitant]
     Indication: PRODUCT USED FOR UNKNOWN INDICATION
  5. ALFALFA [Concomitant]
     Indication: PRODUCT USED FOR UNKNOWN INDICATION
  6. SYNTHROID [Suspect]
     Indication: HYPOTHYROIDISM
     Dosage: TUES, THURS, SUN
     Route: 048
     Dates: end: 20100819
  7. ESSENTIAL FATTY ACID-ESA [Concomitant]
     Indication: PRODUCT USED FOR UNKNOWN INDICATION
  8. SYNTHROID [Suspect]
     Indication: HYPOTHYROIDISM
     Dosage: MON, WED, FRI, SAT
     Route: 048
  9. EVENING PRIMROSE [Concomitant]
     Indication: MEDICAL DIET
     Route: 048
  10. VITAMIN B [Concomitant]
  11. VITAMIN D [Concomitant]
     Indication: PRODUCT USED FOR UNKNOWN INDICATION
  12. VITAMIN B [Concomitant]
     Indication: PRODUCT USED FOR UNKNOWN INDICATION
  13. KYOLIC [Concomitant]
     Indication: PRODUCT USED FOR UNKNOWN INDICATION
  14. SELENIUM [Concomitant]
     Indication: PRODUCT USED FOR UNKNOWN INDICATION
  15. SYNTHROID [Suspect]
     Dosage: SUN, TUES, THURS, FRI
     Route: 048
     Dates: start: 20100819
  16. VITAMIN A [Concomitant]
     Indication: PRODUCT USED FOR UNKNOWN INDICATION
  17. VITAMIN B6 [Concomitant]
     Indication: PRODUCT USED FOR UNKNOWN INDICATION
  18. APPLE PECTIN [Concomitant]
     Indication: MEDICAL DIET
     Route: 048
  19. VITAMIN E [Concomitant]
     Indication: PRODUCT USED FOR UNKNOWN INDICATION
  20. LECITHIN [Concomitant]
     Indication: PRODUCT USED FOR UNKNOWN INDICATION
  21. ACIDOPHILUS [Concomitant]
     Indication: PRODUCT USED FOR UNKNOWN INDICATION
  22. CALCIUM [Concomitant]
     Indication: PRODUCT USED FOR UNKNOWN INDICATION
     Dosage: AT HOUR OF SLEEP
     Route: 048
  23. SYNTHROID [Suspect]
     Dosage: MON, WED, SAT
     Route: 048
  24. ASCORBIC ACID [Concomitant]
     Indication: PRODUCT USED FOR UNKNOWN INDICATION
  25. MULTI-VITAMIN [Concomitant]
     Indication: PRODUCT USED FOR UNKNOWN INDICATION
  26. WHEY PROTEIN [Concomitant]
     Indication: PRODUCT USED FOR UNKNOWN INDICATION
     Dosage: PUTS IN COFFEE

REACTIONS (13)
  - MUSCULOSKELETAL STIFFNESS [None]
  - PAIN [None]
  - FATIGUE [None]
  - WEIGHT INCREASED [None]
  - PYREXIA [None]
  - DYSPEPSIA [None]
  - ASTHENIA [None]
  - BRADYPHRENIA [None]
  - DEPRESSION [None]
  - INSOMNIA [None]
  - NAUSEA [None]
  - IMPAIRED GASTRIC EMPTYING [None]
  - MUSCULAR WEAKNESS [None]
